FAERS Safety Report 10423400 (Version 1)
Quarter: 2014Q3

REPORT INFORMATION
  Report Type: Spontaneous
  Country: US (occurrence: None)
  Receive Date: 20140728
  Receipt Date: 20140728
  Transmission Date: 20150326
  Serious: Yes (Other)
  Sender: FDA-Public Use
  Company Number: PHEH2013US019697

PATIENT
  Sex: Male

DRUGS (2)
  1. FORADIL [Suspect]
     Active Substance: FORMOTEROL FUMARATE
     Indication: LUNG DISORDER
     Dosage: 1 DF, BID, INHALATION
     Route: 055
  2. ASMANEX [Concomitant]
     Active Substance: MOMETASONE FUROATE

REACTIONS (6)
  - Bronchial disorder [None]
  - Dyspnoea [None]
  - Device malfunction [None]
  - Bronchitis [None]
  - Wheezing [None]
  - Incorrect dose administered [None]
